FAERS Safety Report 5941720-7 (Version None)
Quarter: 2008Q4

REPORT INFORMATION
  Report Type: 
  Country: None (occurrence: None)
  Receive Date: 20081105
  Receipt Date: 20081031
  Transmission Date: 20090506
  Serious: Yes (Hospitalization)
  Sender: FDA-Public Use
  Company Number: FR-TEVA-179751ISR

PATIENT
  Sex: Male

DRUGS (2)
  1. CARBOPLATIN [Suspect]
     Route: 042
     Dates: start: 20080804, end: 20080804
  2. DOCETAXEL [Suspect]
     Route: 042
     Dates: start: 20080804, end: 20080804

REACTIONS (1)
  - NEUTROPENIC COLITIS [None]
